FAERS Safety Report 24868526 (Version 1)
Quarter: 2025Q1

REPORT INFORMATION
  Report Type: Spontaneous
  Country: US (occurrence: None)
  Receive Date: 20250121
  Receipt Date: 20250121
  Transmission Date: 20250409
  Serious: Yes (Hospitalization)
  Sender: FDA-CTU
  Company Number: None

PATIENT
  Age: 81 Year
  Sex: Female
  Weight: 105.01 kg

DRUGS (4)
  1. MIRCERA [Suspect]
     Active Substance: METHOXY POLYETHYLENE GLYCOL-EPOETIN BETA
     Indication: Anaemia
     Route: 042
  2. TUBERSOL [Concomitant]
     Active Substance: TUBERCULIN PURIFIED PROTEIN DERIVATIVE
  3. subdermal/Venofer [Concomitant]
  4. DIPHENHYDRAMINE [Concomitant]
     Active Substance: DIPHENHYDRAMINE

REACTIONS (11)
  - Dialysis [None]
  - Drug hypersensitivity [None]
  - Lethargy [None]
  - Feeling hot [None]
  - Anxiety [None]
  - Agitation [None]
  - Chest discomfort [None]
  - Unresponsive to stimuli [None]
  - Blood pressure decreased [None]
  - Confusional state [None]
  - Speech disorder [None]

NARRATIVE: CASE EVENT DATE: 20250109
